FAERS Safety Report 10258749 (Version 2)
Quarter: 2014Q2

REPORT INFORMATION
  Report Type: Spontaneous
  Country: US (occurrence: US)
  Receive Date: 20140625
  Receipt Date: 20140625
  Transmission Date: 20141212
  Serious: No
  Sender: FDA-Public Use
  Company Number: US-ASTELLAS-2012US001952

PATIENT
  Sex: Male
  Weight: 100 kg

DRUGS (2)
  1. VESICARE [Suspect]
     Indication: NOCTURIA
     Route: 048
     Dates: start: 2012
  2. VESICARE [Suspect]
     Route: 048

REACTIONS (2)
  - Drug ineffective for unapproved indication [Unknown]
  - Constipation [Recovered/Resolved]
